FAERS Safety Report 5569589-3 (Version None)
Quarter: 2007Q4

REPORT INFORMATION
  Report Type: 
  Country: None (occurrence: None)
  Receive Date: 20071220
  Receipt Date: 20071211
  Transmission Date: 20080405
  Serious: Yes (Hospitalization, Other)
  Sender: FDA-Public Use
  Company Number: CH-ELI_LILLY_AND_COMPANY-CH200712002593

PATIENT
  Sex: Male

DRUGS (5)
  1. CYMBALTA [Suspect]
     Indication: DEPRESSION
     Dosage: 60 MG, DAILY (1/D)
     Route: 065
     Dates: start: 20070101
  2. CYMBALTA [Suspect]
     Dosage: 90 MG, DAILY (1/D)
     Route: 065
     Dates: start: 20070101
  3. CYMBALTA [Suspect]
     Dosage: UNK, UNKNOWN
     Route: 065
     Dates: start: 20070101
  4. COMBIVIR [Concomitant]
     Indication: HIV INFECTION
     Dates: start: 20070101
  5. KALETRA [Concomitant]
     Indication: HIV INFECTION
     Dates: start: 20070101

REACTIONS (3)
  - DIPLEGIA [None]
  - DRUG INTERACTION [None]
  - TREMOR [None]
